FAERS Safety Report 4336512-9 (Version None)
Quarter: 2004Q2

REPORT INFORMATION
  Report Type: 
  Country: None (occurrence: None)
  Receive Date: 20040407
  Receipt Date: 20040407
  Transmission Date: 20050107
  Serious: Yes (Hospitalization)
  Sender: FDA-Public Use
  Company Number: None

PATIENT
  Age: 5 Year

DRUGS (1)
  1. VIRAVAN -DM SUSPENSION [Suspect]

REACTIONS (4)
  - HALLUCINATION [None]
  - MEDICATION ERROR [None]
  - OVERDOSE [None]
  - PSYCHOTIC DISORDER [None]
